FAERS Safety Report 6043410-1 (Version None)
Quarter: 2009Q1

REPORT INFORMATION
  Report Type: 
  Country: None (occurrence: None)
  Receive Date: 20090115
  Receipt Date: 20090115
  Transmission Date: 20090719
  Serious: No
  Sender: FDA-Public Use
  Company Number: None

PATIENT
  Sex: Male
  Weight: 64.4108 kg

DRUGS (2)
  1. AMIFOSTINE [Suspect]
     Indication: DRY MOUTH
     Dosage: 500MG M-F SQ 6 DOSES
     Route: 058
     Dates: start: 20090106
  2. AMIFOSTINE [Suspect]
     Indication: HEAD AND NECK CANCER
     Dosage: 500MG M-F SQ 6 DOSES
     Route: 058
     Dates: start: 20090106

REACTIONS (1)
  - RASH MACULO-PAPULAR [None]
